FAERS Safety Report 6334055-4 (Version None)
Quarter: 2009Q3

REPORT INFORMATION
  Report Type: 
  Country: None (occurrence: None)
  Receive Date: 20090829
  Receipt Date: 20090710
  Transmission Date: 20100115
  Serious: No
  Sender: FDA-Public Use
  Company Number: US-ABBOTT-09P-163-0584885-00

PATIENT
  Sex: Female

DRUGS (1)
  1. SIMCOR [Suspect]
     Indication: BLOOD CHOLESTEROL INCREASED

REACTIONS (4)
  - ABDOMINAL DISCOMFORT [None]
  - FLUSHING [None]
  - PRURITUS [None]
  - PRURITUS GENERALISED [None]
